FAERS Safety Report 13565521 (Version 6)
Quarter: 2018Q1

REPORT INFORMATION
  Report Type: Spontaneous
  Country: US (occurrence: US)
  Receive Date: 20170519
  Receipt Date: 20180103
  Transmission Date: 20180508
  Serious: No
  Sender: FDA-Public Use
  Company Number: US-ACTELION-A-US2017-154004

PATIENT
  Age: 58 Year
  Sex: Female
  Weight: 156.46 kg

DRUGS (7)
  1. OPSUMIT [Suspect]
     Active Substance: MACITENTAN
     Indication: PULMONARY ARTERIAL HYPERTENSION
     Dosage: 10 MG, QD
     Route: 048
     Dates: start: 20170504, end: 20171117
  2. OPSUMIT [Suspect]
     Active Substance: MACITENTAN
     Dosage: 10 MG, QD
     Route: 048
     Dates: start: 20171201
  3. ADCIRCA [Concomitant]
     Active Substance: TADALAFIL
  4. ADEMPAS [Concomitant]
     Active Substance: RIOCIGUAT
  5. UPTRAVI [Concomitant]
     Active Substance: SELEXIPAG
  6. XARELTO [Concomitant]
     Active Substance: RIVAROXABAN
  7. LOSARTAN. [Concomitant]
     Active Substance: LOSARTAN

REACTIONS (5)
  - Diarrhoea [Recovering/Resolving]
  - Gout [Recovering/Resolving]
  - Oedema peripheral [Unknown]
  - Pain in extremity [Recovering/Resolving]
  - Hypotension [Unknown]

NARRATIVE: CASE EVENT DATE: 201712
